FAERS Safety Report 5271524-2 (Version None)
Quarter: 2007Q1

REPORT INFORMATION
  Report Type: 
  Country: None (occurrence: None)
  Receive Date: 20070316
  Receipt Date: 20070313
  Transmission Date: 20070707
  Serious: Yes (Hospitalization)
  Sender: FDA-Public Use
  Company Number: 0703-198

PATIENT
  Age: 80 Year
  Sex: Male
  Weight: 69.8539 kg

DRUGS (9)
  1. ALBUTEROL SULFATE AUTOHALER [Suspect]
     Indication: CHRONIC OBSTRUCTIVE PULMONARY DISEASE
     Dosage: Q4H
     Dates: start: 20070312
  2. ALPRAZOLAM [Concomitant]
  3. FLOMAX [Concomitant]
  4. ASPIRIN [Concomitant]
  5. ADVAIR DISKUS 100/50 [Concomitant]
  6. FOSAMAX [Concomitant]
  7. TESTOSTERONE [Concomitant]
  8. VITAMIN D [Concomitant]
  9. OSCAL [Concomitant]

REACTIONS (2)
  - BRONCHITIS [None]
  - PNEUMONIA [None]
